FAERS Safety Report 9618035 (Version 2)
Quarter: 2013Q4

REPORT INFORMATION
  Report Type: Report from Study
  Country: US (occurrence: US)
  Receive Date: 20131012
  Receipt Date: 20131017
  Transmission Date: 20140711
  Serious: Yes (Death)
  Sender: FDA-Public Use
  Company Number: US-ROCHE-1288298

PATIENT
  Sex: Female

DRUGS (1)
  1. AVASTIN [Suspect]
     Indication: UTERINE CANCER
     Dosage: 1 DOSE
     Route: 042
     Dates: start: 20130418

REACTIONS (1)
  - Endometrial cancer [Fatal]
